FAERS Safety Report 6688000-2 (Version None)
Quarter: 2010Q2

REPORT INFORMATION
  Report Type: 
  Country: None (occurrence: None)
  Receive Date: 20100420
  Receipt Date: 20100414
  Transmission Date: 20101027
  Serious: Yes (Other)
  Sender: FDA-Public Use
  Company Number: FR-BRISTOL-MYERS SQUIBB COMPANY-15063928

PATIENT
  Age: 25 Year
  Sex: Female

DRUGS (1)
  1. REYATAZ [Suspect]

REACTIONS (1)
  - CYTOLYTIC HEPATITIS [None]
